FAERS Safety Report 15148036 (Version 3)
Quarter: 2018Q3

REPORT INFORMATION
  Report Type: Spontaneous
  Country: IT (occurrence: IT)
  Receive Date: 20180716
  Receipt Date: 20180820
  Transmission Date: 20181010
  Serious: Yes (Hospitalization)
  Sender: FDA-Public Use
  Company Number: IT-TEVA-2018-IT-925972

PATIENT
  Age: 77 Year
  Sex: Male

DRUGS (8)
  1. FERRO?GRAD [Concomitant]
     Active Substance: FERROUS SULFATE
     Route: 048
  2. SINEMET [Concomitant]
     Active Substance: CARBIDOPA\LEVODOPA
     Dosage: STRENGTH: 100 MG + 25 MG
     Route: 048
  3. TIMOPTOL [Concomitant]
     Active Substance: TIMOLOL
     Route: 047
  4. SEROQUEL [Concomitant]
     Active Substance: QUETIAPINE FUMARATE
     Route: 048
  5. DIAMICRON [Concomitant]
     Active Substance: GLICLAZIDE
     Route: 048
  6. METFORMIN [Suspect]
     Active Substance: METFORMIN HYDROCHLORIDE
     Indication: DIABETES MELLITUS
     Dosage: 2 DOSAGE FORMS DAILY;
     Route: 048
     Dates: start: 20170101, end: 20170429
  7. AVODART [Concomitant]
     Active Substance: DUTASTERIDE
     Route: 048
  8. INDERAL 40 MG COMPRESSE. [Concomitant]
     Route: 048

REACTIONS (1)
  - Hyperlactacidaemia [Unknown]

NARRATIVE: CASE EVENT DATE: 20170429
